FAERS Safety Report 9237390 (Version 1)
Quarter: 2013Q2

REPORT INFORMATION
  Report Type: Spontaneous
  Country: US (occurrence: US)
  Receive Date: 20130417
  Receipt Date: 20130417
  Transmission Date: 20140414
  Serious: No
  Sender: FDA-Public Use
  Company Number: US-PFIZER INC-2013117757

PATIENT
  Age: 62 Year
  Sex: Female
  Weight: 104 kg

DRUGS (2)
  1. ESTRING [Suspect]
     Indication: VULVOVAGINAL BURNING SENSATION
     Dosage: UNK,EVERY 90 DAYS
     Route: 067
     Dates: start: 201303
  2. ESTRING [Suspect]
     Indication: VULVOVAGINAL DRYNESS

REACTIONS (1)
  - Vulvovaginal pruritus [Recovering/Resolving]
